FAERS Safety Report 17015098 (Version 1)
Quarter: 2019Q4

REPORT INFORMATION
  Report Type: Spontaneous
  Country: US (occurrence: US)
  Receive Date: 20191108
  Receipt Date: 20191108
  Transmission Date: 20200122
  Serious: Yes (Other)
  Sender: FDA-Public Use
  Company Number: None

PATIENT
  Age: 18 Year
  Sex: Female
  Weight: 74 kg

DRUGS (1)
  1. FERRLECIT [Suspect]
     Active Substance: SODIUM FERRIC GLUCONATE COMPLEX
     Indication: IRON DEFICIENCY ANAEMIA
     Dosage: ?          OTHER FREQUENCY:Q7 DAYS;?
     Route: 041
     Dates: start: 20191017, end: 20191024

REACTIONS (4)
  - Pruritus [None]
  - Urticaria [None]
  - Infusion site reaction [None]
  - Drug hypersensitivity [None]

NARRATIVE: CASE EVENT DATE: 20191024
